FAERS Safety Report 8174258-X (Version None)
Quarter: 2012Q1

REPORT INFORMATION
  Report Type: 
  Country: None (occurrence: None)
  Receive Date: 20120224
  Receipt Date: 20120206
  Transmission Date: 20120608
  Serious: Yes (Hospitalization, Other)
  Sender: FDA-Public Use
  Company Number: 2012AP000387

PATIENT
  Age: 47 Year
  Sex: Male

DRUGS (2)
  1. METFORMIN HCL [Suspect]
     Indication: TYPE 2 DIABETES MELLITUS
     Dosage: 850 MG;Q8H
  2. GLIMEPIRIDE [Concomitant]

REACTIONS (10)
  - HAEMODIALYSIS [None]
  - PANCREATITIS ACUTE [None]
  - ASTHENIA [None]
  - LACTIC ACIDOSIS [None]
  - SYNCOPE [None]
  - DISCOMFORT [None]
  - HYPOVOLAEMIA [None]
  - RENAL FAILURE ACUTE [None]
  - DECREASED APPETITE [None]
  - CONTINUOUS HAEMODIAFILTRATION [None]
